FAERS Safety Report 9619465 (Version 1)
Quarter: 2013Q4

REPORT INFORMATION
  Report Type: Spontaneous
  Country: IR (occurrence: IR)
  Receive Date: 20131014
  Receipt Date: 20131014
  Transmission Date: 20140711
  Serious: Yes (Other)
  Sender: FDA-Public Use
  Company Number: IR-MYLANLABS-2013S1022027

PATIENT
  Age: 36 Year
  Sex: Female

DRUGS (1)
  1. ACICLOVIR [Suspect]
     Route: 042

REACTIONS (1)
  - Drug-induced liver injury [Recovering/Resolving]
